FAERS Safety Report 5702401-8 (Version None)
Quarter: 2008Q2

REPORT INFORMATION
  Report Type: 
  Country: None (occurrence: None)
  Receive Date: 20080411
  Receipt Date: 20080402
  Transmission Date: 20081010
  Serious: Yes (Disabling)
  Sender: FDA-Public Use
  Company Number: FR-ASTRAZENECA-2008CG00397

PATIENT
  Age: 615 Month
  Sex: Female
  Weight: 55 kg

DRUGS (3)
  1. ZOMIG [Suspect]
     Indication: MIGRAINE
     Route: 048
     Dates: start: 19980101
  2. SECTRAL [Concomitant]
     Indication: MIGRAINE
  3. LEVOTHYROXINE SODIUM [Concomitant]
     Indication: HYPOTHYROIDISM

REACTIONS (2)
  - MUSCLE CONTRACTURE [None]
  - TENDONITIS [None]
